FAERS Safety Report 9425446 (Version 1)
Quarter: 2013Q3

REPORT INFORMATION
  Report Type: Spontaneous
  Country: US (occurrence: US)
  Receive Date: 20130729
  Receipt Date: 20130729
  Transmission Date: 20140515
  Serious: Yes (Hospitalization)
  Sender: FDA-Public Use
  Company Number: US-009507513-1307USA014244

PATIENT
  Sex: Male

DRUGS (2)
  1. COZAAR [Suspect]
     Route: 048
  2. LOSARTAN POTASSIUM TABLETS [Suspect]
     Route: 048

REACTIONS (5)
  - Stent placement [Unknown]
  - Rash [Unknown]
  - Pain in extremity [Unknown]
  - Musculoskeletal pain [Unknown]
  - Drug ineffective [Unknown]
